FAERS Safety Report 20548618 (Version 1)
Quarter: 2022Q1

REPORT INFORMATION
  Report Type: Spontaneous
  Country: US (occurrence: US)
  Receive Date: 20220303
  Receipt Date: 20220303
  Transmission Date: 20220423
  Serious: No
  Sender: FDA-Public Use
  Company Number: US-ALLERGAN-2118224US

PATIENT
  Age: 71 Year
  Sex: Male

DRUGS (1)
  1. RESTASIS [Suspect]
     Active Substance: CYCLOSPORINE
     Indication: Product used for unknown indication
     Dosage: 1 GTT, BID
     Dates: start: 2020, end: 2021

REACTIONS (2)
  - Vision blurred [Recovered/Resolved]
  - Drug ineffective [Unknown]
